FAERS Safety Report 18396139 (Version 1)
Quarter: 2020Q4

REPORT INFORMATION
  Report Type: Spontaneous
  Country: US (occurrence: US)
  Receive Date: 20201019
  Receipt Date: 20201019
  Transmission Date: 20210114
  Serious: No
  Sender: FDA-Public Use
  Company Number: NVSC2020US274417

PATIENT
  Sex: Female
  Weight: 73.48 kg

DRUGS (1)
  1. ESTRADIOL. [Suspect]
     Active Substance: ESTRADIOL
     Indication: BLOOD OESTROGEN
     Dosage: 5MG/ML 1ML INJECTION
     Route: 065

REACTIONS (2)
  - Weight increased [Unknown]
  - Skin disorder [Unknown]
